FAERS Safety Report 6085037-1 (Version None)
Quarter: 2009Q1

REPORT INFORMATION
  Report Type: 
  Country: None (occurrence: None)
  Receive Date: 20090218
  Receipt Date: 20090209
  Transmission Date: 20090719
  Serious: Yes (Disabling)
  Sender: FDA-Public Use
  Company Number: APP200800810

PATIENT
  Age: 17 Year
  Sex: Female
  Weight: 63.5036 kg

DRUGS (6)
  1. MARCAINE [Suspect]
     Indication: MUSCULOSKELETAL PAIN
     Dosage: 270 ML, 0.5% CONTINUOUS VIA PAIN PUMP, INTRA-ARTICULAR
     Route: 014
     Dates: start: 20050203
  2. THERMAL PROBE [Suspect]
     Indication: MUSCULOSKELETAL PAIN
     Dates: start: 20050203
  3. DON JOY PAIN PUMP [Suspect]
     Indication: MUSCULOSKELETAL PAIN
     Dates: start: 20050203
  4. LACTATED RINGERS WITH EPINEPRINE (FLEBOBAG RING LACT) [Concomitant]
  5. // [Concomitant]
  6. ALBUTEROL [Concomitant]

REACTIONS (8)
  - CHONDROLYSIS [None]
  - CHONDROMALACIA [None]
  - DEVICE TOXICITY [None]
  - FALL [None]
  - IMPLANT SITE EFFUSION [None]
  - JOINT STIFFNESS [None]
  - MUSCULOSKELETAL PAIN [None]
  - OSTEOARTHRITIS [None]
